FAERS Safety Report 14461158 (Version 3)
Quarter: 2018Q1

REPORT INFORMATION
  Report Type: Spontaneous
  Country: IT (occurrence: IT)
  Receive Date: 20180130
  Receipt Date: 20180322
  Transmission Date: 20180509
  Serious: Yes (Other)
  Sender: FDA-Public Use
  Company Number: IT-PFIZER INC-2018037963

PATIENT
  Age: 66 Year
  Sex: Male

DRUGS (6)
  1. TRIATEC [Suspect]
     Active Substance: RAMIPRIL
     Dosage: 2.5 MG, DAILY
     Route: 048
     Dates: start: 20170101, end: 20170510
  2. ADALAT [Suspect]
     Active Substance: NIFEDIPINE
     Dosage: 30 MG, DAILY
     Route: 048
     Dates: start: 20170101, end: 20170510
  3. TENORMIN [Suspect]
     Active Substance: ATENOLOL
     Indication: HYPERTENSION
     Dosage: 100 MG, DAILY
     Route: 048
     Dates: start: 20170101, end: 20170510
  4. TORVAST [Concomitant]
     Active Substance: ATORVASTATIN
     Dosage: UNK
  5. ZYLLT [Concomitant]
     Active Substance: CLOPIDOGREL BISULFATE
     Dosage: UNK
  6. CARDIOASPIRIN [Concomitant]
     Active Substance: ASPIRIN
     Dosage: UNK

REACTIONS (2)
  - Arrhythmia [Recovering/Resolving]
  - Vertigo [Recovering/Resolving]

NARRATIVE: CASE EVENT DATE: 20170510
